FAERS Safety Report 5284081-1 (Version None)
Quarter: 2007Q1

REPORT INFORMATION
  Report Type: 
  Country: None (occurrence: None)
  Receive Date: 20070327
  Receipt Date: 20070315
  Transmission Date: 20070707
  Serious: Yes (Hospitalization)
  Sender: FDA-Public Use
  Company Number: CIP06002857

PATIENT
  Age: 87 Year
  Sex: Male

DRUGS (5)
  1. NITROFURANTOIN (MONOHYDRATE/MACROCRYSTALS) [Suspect]
     Dosage: SEE IMAGE
     Route: 048
     Dates: start: 20070309, end: 20070301
  2. NITROFURANTOIN (MONOHYDRATE/MACROCRYSTALS) [Suspect]
     Dosage: SEE IMAGE
     Route: 048
     Dates: start: 20061101
  3. ISOSORBIDE (ISOSORBIDE) [Concomitant]
  4. METAPROTERENOL /00000201/ (ORCIPRENALINE) [Concomitant]
  5. DRUG NOS [Concomitant]

REACTIONS (7)
  - ABASIA [None]
  - ASTHENIA [None]
  - CARDIAC OUTPUT DECREASED [None]
  - DYSPNOEA [None]
  - DYSPNOEA EXERTIONAL [None]
  - HEART RATE DECREASED [None]
  - OEDEMA PERIPHERAL [None]
